FAERS Safety Report 5496501-8 (Version None)
Quarter: 2007Q4

REPORT INFORMATION
  Report Type: 
  Country: None (occurrence: None)
  Receive Date: 20071023
  Receipt Date: 20071015
  Transmission Date: 20080405
  Serious: Yes (Disabling)
  Sender: FDA-Public Use
  Company Number: 2007328199

PATIENT
  Age: 43 Year
  Sex: Female
  Weight: 53 kg

DRUGS (1)
  1. ROGAINE 5 [Suspect]
     Indication: ALOPECIA
     Dosage: EVERY DAY, TOPICAL
     Route: 061
     Dates: start: 20070421, end: 20070619

REACTIONS (2)
  - ALOPECIA [None]
  - CONDITION AGGRAVATED [None]
